FAERS Safety Report 13075584 (Version 1)
Quarter: 2016Q4

REPORT INFORMATION
  Report Type: Spontaneous
  Country: US (occurrence: US)
  Receive Date: 20161230
  Receipt Date: 20161230
  Transmission Date: 20170207
  Serious: No
  Sender: FDA-Public Use
  Company Number: US-009507513-1606USA003135

PATIENT
  Sex: Female

DRUGS (1)
  1. NUVARING [Suspect]
     Active Substance: ETHINYL ESTRADIOL\ETONOGESTREL
     Dosage: STRENGTH REPORTED AS 0.015/0.12 (UNITS NOT PROVIDED) UNK
     Route: 067

REACTIONS (2)
  - Intentional medical device removal by patient [Unknown]
  - No adverse event [Unknown]
